FAERS Safety Report 8889352 (Version 1)
Quarter: 2012Q4

REPORT INFORMATION
  Report Type: Spontaneous
  Country: US (occurrence: None)
  Receive Date: 20121102
  Receipt Date: 20121102
  Transmission Date: 20130627
  Serious: Yes (Life-Threatening, Hospitalization, Other)
  Sender: FDA-Public Use
  Company Number: None

PATIENT
  Age: 66 Year
  Sex: Female
  Weight: 72.58 kg

DRUGS (1)
  1. PRAMIPEXOLE [Suspect]
     Indication: RESTLESS LEGS
     Dosage: Two or more years

REACTIONS (8)
  - Paraesthesia [None]
  - Somnolence [None]
  - Sleep disorder [None]
  - Sleep apnoea syndrome [None]
  - Dyspnoea [None]
  - Cardiac arrest [None]
  - Vomiting [None]
  - Syncope [None]
